FAERS Safety Report 14022102 (Version 4)
Quarter: 2018Q1

REPORT INFORMATION
  Report Type: Spontaneous
  Country: US (occurrence: US)
  Receive Date: 20170928
  Receipt Date: 20180227
  Transmission Date: 20180508
  Serious: Yes (Death, Hospitalization, Other)
  Sender: FDA-Public Use
  Company Number: US-ACTELION-A-NJ2017-159994

PATIENT
  Age: 68 Year
  Sex: Female
  Weight: 58.96 kg

DRUGS (2)
  1. TRACLEER [Suspect]
     Active Substance: BOSENTAN
     Indication: PULMONARY ARTERIAL HYPERTENSION
     Dosage: 125 MG, BID
     Route: 048
     Dates: start: 20120726
  2. LETAIRIS [Concomitant]
     Active Substance: AMBRISENTAN

REACTIONS (9)
  - Dyspnoea [Recovered/Resolved]
  - Fluid retention [Unknown]
  - Transfusion [Unknown]
  - Death [Fatal]
  - Anxiety [Recovered/Resolved]
  - Abdominal cavity drainage [Unknown]
  - Anaemia [Unknown]
  - Stress [Recovered/Resolved]
  - Scleroderma [Unknown]

NARRATIVE: CASE EVENT DATE: 20180213
